FAERS Safety Report 6835412-X (Version None)
Quarter: 2010Q3

REPORT INFORMATION
  Report Type: 
  Country: None (occurrence: None)
  Receive Date: 20100712
  Receipt Date: 20100712
  Transmission Date: 20110219
  Serious: No
  Sender: FDA-Public Use
  Company Number: None

PATIENT
  Sex: Female
  Weight: 79.3795 kg

DRUGS (3)
  1. RESTASIS [Suspect]
     Indication: DRY EYE
     Dosage: 1 DROP 3XDAILY EYE
     Dates: start: 20100101
  2. ALERGAN [Concomitant]
  3. XALATAN [Concomitant]

REACTIONS (1)
  - VISION BLURRED [None]
